FAERS Safety Report 9948090 (Version 1)
Quarter: 2014Q1

REPORT INFORMATION
  Report Type: Spontaneous
  Country: PR (occurrence: PR)
  Receive Date: 20140303
  Receipt Date: 20140303
  Transmission Date: 20141002
  Serious: No
  Sender: FDA-Public Use
  Company Number: PR-ABBVIE-13P-131-1064572-00

PATIENT
  Sex: Female
  Weight: 68.1 kg

DRUGS (6)
  1. HUMIRA [Suspect]
     Indication: OSTEOARTHRITIS
     Route: 058
     Dates: start: 2010, end: 20130314
  2. DIOVAN [Concomitant]
     Indication: HYPERTENSION
     Route: 048
  3. PREDNISONE [Concomitant]
     Indication: OSTEOARTHRITIS
     Route: 048
  4. FOLIC ACID [Concomitant]
     Indication: OSTEOARTHRITIS
     Route: 048
  5. METHOTREXATE [Concomitant]
     Indication: OSTEOARTHRITIS
     Route: 048
  6. TRAMADOL [Concomitant]
     Indication: PAIN
     Dosage: 2 TABLETS DAILY AS NEEDED
     Route: 048

REACTIONS (1)
  - Asthma [Unknown]
